FAERS Safety Report 23368144 (Version 4)
Quarter: 2024Q1

REPORT INFORMATION
  Report Type: Spontaneous
  Country: MX (occurrence: MX)
  Receive Date: 20240105
  Receipt Date: 20240327
  Transmission Date: 20240410
  Serious: Yes (Other)
  Sender: FDA-Public Use
  Company Number: MX-BEH-2024167006

PATIENT

DRUGS (1)
  1. HUMAN IMMUNOGLOBULIN G [Suspect]
     Active Substance: HUMAN IMMUNOGLOBULIN G
     Dosage: 30 GRAM, QD, FOR 5 DAYS
     Route: 042
     Dates: start: 20231113, end: 20231117

REACTIONS (2)
  - Suspected counterfeit product [Unknown]
  - Counterfeit product administered [Unknown]
